FAERS Safety Report 6132075-6 (Version None)
Quarter: 2009Q1

REPORT INFORMATION
  Report Type: 
  Country: None (occurrence: None)
  Receive Date: 20090325
  Receipt Date: 20090318
  Transmission Date: 20090719
  Serious: Yes (Hospitalization, Congenital Anomaly)
  Sender: FDA-Public Use
  Company Number: A0662925A

PATIENT
  Sex: Female

DRUGS (4)
  1. PAXIL [Suspect]
     Indication: DEPRESSION
     Dates: start: 19960101, end: 19980101
  2. PENICILLIN [Concomitant]
     Dosage: 500MG FOUR TIMES PER DAY
     Dates: start: 19970901
  3. VITAMIN TAB [Concomitant]
     Indication: PREGNANCY
     Dates: start: 19970101
  4. ACCURETIC [Concomitant]
     Dosage: 25MG PER DAY
     Dates: start: 19970101

REACTIONS (8)
  - ATRIAL SEPTAL DEFECT [None]
  - CONGENITAL ANOMALY [None]
  - CONGENITAL HEART VALVE DISORDER [None]
  - DRUG EXPOSURE DURING PREGNANCY [None]
  - HAND DEFORMITY [None]
  - LIMB MALFORMATION [None]
  - MULTIPLE CONGENITAL ABNORMALITIES [None]
  - VENTRICULAR SEPTAL DEFECT [None]
